FAERS Safety Report 13604507 (Version 1)
Quarter: 2017Q2

REPORT INFORMATION
  Report Type: Spontaneous
  Country: US (occurrence: US)
  Receive Date: 20170602
  Receipt Date: 20170602
  Transmission Date: 20170830
  Serious: No
  Sender: FDA-Public Use
  Company Number: US-NOVEN PHARMACEUTICALS, INC.-US2016001514

PATIENT

DRUGS (3)
  1. DAYTRANA [Suspect]
     Active Substance: METHYLPHENIDATE
     Indication: ATTENTION DEFICIT/HYPERACTIVITY DISORDER
     Dosage: 20 MG, UNKNOWN
     Route: 062
     Dates: start: 2015, end: 201606
  2. FLINTSTONES [Concomitant]
     Dosage: UNK, BEDTIME
  3. MELATONIN [Concomitant]
     Active Substance: MELATONIN
     Dosage: UNK, BEDTIME

REACTIONS (12)
  - Chest pain [Recovered/Resolved]
  - Dermatillomania [Unknown]
  - Dandruff [Not Recovered/Not Resolved]
  - Blood pressure increased [Recovering/Resolving]
  - Scar [Unknown]
  - Scratch [Not Recovered/Not Resolved]
  - Anxiety [Unknown]
  - Erection increased [Recovered/Resolved]
  - Palpitations [Recovering/Resolving]
  - Drug dose omission [Recovered/Resolved]
  - Incorrect dose administered [Recovered/Resolved]
  - Alopecia [Recovering/Resolving]

NARRATIVE: CASE EVENT DATE: 201603
